FAERS Safety Report 24716906 (Version 2)
Quarter: 2025Q1

REPORT INFORMATION
  Report Type: Spontaneous
  Country: CN (occurrence: CN)
  Receive Date: 20241210
  Receipt Date: 20250124
  Transmission Date: 20250409
  Serious: Yes (Other)
  Sender: PFIZER
  Company Number: CN-PFIZER INC-202400317258

PATIENT
  Age: 56 Year
  Sex: Female
  Weight: 60 kg

DRUGS (1)
  1. IBRANCE [Suspect]
     Active Substance: PALBOCICLIB
     Indication: Breast cancer
     Route: 048
     Dates: start: 202303

REACTIONS (3)
  - Retinal haemorrhage [Recovering/Resolving]
  - Vision blurred [Recovering/Resolving]
  - Vitreous floaters [Recovering/Resolving]

NARRATIVE: CASE EVENT DATE: 20240301
